FAERS Safety Report 7068034-9 (Version None)
Quarter: 2010Q4

REPORT INFORMATION
  Report Type: 
  Country: None (occurrence: None)
  Receive Date: 20101027
  Receipt Date: 20101027
  Transmission Date: 20110411
  Serious: No
  Sender: FDA-Public Use
  Company Number: None

PATIENT
  Age: 67 Year
  Sex: Female
  Weight: 86.1834 kg

DRUGS (1)
  1. ZICAM NASAL GEL ZICAM [Suspect]
     Indication: NASOPHARYNGITIS
     Dosage: 1 PUFF IN EACH NOSTRIL AS NEEDED
     Dates: start: 20100401, end: 20100604

REACTIONS (1)
  - ANOSMIA [None]
